FAERS Safety Report 6670614-7 (Version None)
Quarter: 2010Q2

REPORT INFORMATION
  Report Type: 
  Country: None (occurrence: None)
  Receive Date: 20100407
  Receipt Date: 20100329
  Transmission Date: 20101027
  Serious: Yes (Disabling)
  Sender: FDA-Public Use
  Company Number: CH-JNJFOC-20100207529

PATIENT
  Sex: Male

DRUGS (3)
  1. RISPERDAL CONSTA [Suspect]
     Indication: PSYCHOTIC DISORDER
     Route: 030
  2. SOLIAN [Suspect]
     Indication: PSYCHOTIC DISORDER
     Route: 048
  3. DAFALGAN [Concomitant]
     Indication: POST-TRAUMATIC PAIN
     Dosage: 1-2 G
     Route: 048

REACTIONS (3)
  - ABDOMINAL PAIN [None]
  - LIVER INJURY [None]
  - TRANSAMINASES INCREASED [None]
